FAERS Safety Report 9676005 (Version 2)
Quarter: 2013Q4

REPORT INFORMATION
  Report Type: Spontaneous
  Country: JP (occurrence: JP)
  Receive Date: 20131107
  Receipt Date: 20131217
  Transmission Date: 20140711
  Serious: Yes (Hospitalization)
  Sender: FDA-Public Use
  Company Number: PHHY2013JP124307

PATIENT
  Age: 30 Year
  Sex: Male

DRUGS (1)
  1. TEGRETOL [Suspect]
     Indication: DEPRESSION
     Dosage: 600 MG, DAILY
     Route: 048

REACTIONS (3)
  - Concomitant disease aggravated [Recovering/Resolving]
  - Anxiety [Unknown]
  - Stress [Unknown]
